FAERS Safety Report 8483614-1 (Version None)
Quarter: 2012Q3

REPORT INFORMATION
  Report Type: 
  Country: None (occurrence: None)
  Receive Date: 20120702
  Receipt Date: 20120620
  Transmission Date: 20120928
  Serious: Yes (Hospitalization)
  Sender: FDA-Public Use
  Company Number: US-VERTEX PHARMACEUTICALS INC.-AE-2012-009322

PATIENT
  Sex: Male

DRUGS (3)
  1. RIBASPHERE [Concomitant]
     Indication: HEPATITIS C
     Dates: start: 20120401
  2. INCIVEK [Suspect]
     Indication: HEPATITIS C
     Route: 048
     Dates: start: 20120401
  3. PEGASYS [Concomitant]
     Indication: HEPATITIS C
     Dates: start: 20120401

REACTIONS (4)
  - NAUSEA [None]
  - DIZZINESS [None]
  - VOMITING [None]
  - DECREASED APPETITE [None]
